FAERS Safety Report 26060020 (Version 1)
Quarter: 2025Q4

REPORT INFORMATION
  Report Type: Spontaneous
  Country: US (occurrence: US)
  Receive Date: 20251118
  Receipt Date: 20251118
  Transmission Date: 20260118
  Serious: No
  Sender: NANTKWEST
  Company Number: US-NantWorks-2025-US-NANT-00082

PATIENT
  Age: 61 Year
  Sex: Male

DRUGS (1)
  1. ANKTIVA [Suspect]
     Active Substance: NOGAPENDEKIN ALFA INBAKICEPT-PMLN
     Indication: Bladder cancer
     Dosage: THERAPY START DATE AND DATE OF LAST DOSE PRIOR TO ONSET OF EVENT
     Route: 043
     Dates: start: 20251009

REACTIONS (2)
  - Dysuria [Recovering/Resolving]
  - Burning sensation [Recovering/Resolving]

NARRATIVE: CASE EVENT DATE: 20251009
